FAERS Safety Report 21905265 (Version 2)
Quarter: 2023Q1

REPORT INFORMATION
  Report Type: Spontaneous
  Country: US (occurrence: US)
  Receive Date: 20230124
  Receipt Date: 20230201
  Transmission Date: 20230417
  Serious: No
  Sender: FDA-Public Use
  Company Number: US-IDORSIA-002836-2023-US

PATIENT
  Sex: Female

DRUGS (2)
  1. QUVIVIQ [Suspect]
     Active Substance: DARIDOREXANT
     Indication: Insomnia
     Dosage: 50 MG, QD
     Route: 048
     Dates: start: 20221216
  2. VRAYLAR [Concomitant]
     Active Substance: CARIPRAZINE
     Dosage: 1.5 MG
     Route: 048
     Dates: start: 20220103

REACTIONS (4)
  - Condition aggravated [Unknown]
  - Parasomnia [Unknown]
  - Sleep-related eating disorder [Unknown]
  - Drug ineffective [Recovering/Resolving]
